FAERS Safety Report 5401112-6 (Version None)
Quarter: 2007Q3

REPORT INFORMATION
  Report Type: 
  Country: None (occurrence: None)
  Receive Date: 20070731
  Receipt Date: 20070725
  Transmission Date: 20080115
  Serious: Yes (Other)
  Sender: FDA-Public Use
  Company Number: PHBS2007BR12511

PATIENT
  Age: 44 Year
  Sex: Female
  Weight: 97 kg

DRUGS (4)
  1. TRILEPTAL [Suspect]
     Indication: DEPRESSION
     Dosage: 300 MG, BID
     Route: 048
  2. RIVOTRIL [Concomitant]
     Dosage: 2 MG, BID
     Route: 048
  3. RISPERIDONE [Concomitant]
     Dosage: 2 MG, BID
     Route: 048
  4. NEOZINE [Concomitant]
     Indication: SLEEP DISORDER
     Dosage: 100 MG, QHS
     Route: 048
     Dates: start: 20070723

REACTIONS (5)
  - BLOOD PRESSURE INCREASED [None]
  - DIZZINESS [None]
  - HAEMOGLOBIN DECREASED [None]
  - SWELLING [None]
  - WEIGHT INCREASED [None]
